FAERS Safety Report 10052921 (Version 1)
Quarter: 2014Q2

REPORT INFORMATION
  Report Type: Spontaneous
  Country: JP (occurrence: JP)
  Receive Date: 20140402
  Receipt Date: 20140402
  Transmission Date: 20141212
  Serious: Yes (Other)
  Sender: FDA-Public Use
  Company Number: JP-PFIZER INC-2014086650

PATIENT
  Age: 78 Year
  Sex: Male

DRUGS (8)
  1. SUNITINIB MALATE [Suspect]
     Dosage: 25 MG, DAILY
     Route: 048
  2. SUNITINIB MALATE [Suspect]
     Dosage: UNK
  3. RABEPRAZOLE SODIUM [Concomitant]
  4. TAMSULOSIN [Concomitant]
  5. PREDNISOLONE [Concomitant]
     Dosage: 2.5 MG
  6. DIHYDROERGOTAMINE [Concomitant]
  7. GLIMEPIRIDE [Concomitant]
  8. ALOGLIPTIN [Concomitant]

REACTIONS (2)
  - Pneumatosis intestinalis [Recovering/Resolving]
  - Palmar-plantar erythrodysaesthesia syndrome [Unknown]
